FAERS Safety Report 5391590-3 (Version None)
Quarter: 2007Q3

REPORT INFORMATION
  Report Type: 
  Country: None (occurrence: None)
  Receive Date: 20070719
  Receipt Date: 20070709
  Transmission Date: 20080115
  Serious: Yes (Other)
  Sender: FDA-Public Use
  Company Number: FR-PFIZER INC-2007056489

PATIENT
  Age: 35 Year
  Sex: Male

DRUGS (4)
  1. LYRICA [Suspect]
     Indication: NEURALGIA
  2. ATORVASTATIN CALCIUM [Concomitant]
  3. KARDEGIC [Concomitant]
  4. NORSET [Concomitant]

REACTIONS (2)
  - CHOREA [None]
  - SOMNOLENCE [None]
